FAERS Safety Report 6582628-6 (Version None)
Quarter: 2010Q1

REPORT INFORMATION
  Report Type: 
  Country: None (occurrence: None)
  Receive Date: 20100203
  Receipt Date: 20100122
  Transmission Date: 20100710
  Serious: No
  Sender: FDA-Public Use
  Company Number: 2010010056

PATIENT
  Age: 59 Year
  Sex: Male

DRUGS (2)
  1. ONSOLIS [Suspect]
  2. OXYCONTIN [Concomitant]

REACTIONS (1)
  - INTERCEPTED DRUG DISPENSING ERROR [None]
